FAERS Safety Report 10869340 (Version 2)
Quarter: 2015Q1

REPORT INFORMATION
  Report Type: Spontaneous
  Country: GR (occurrence: GR)
  Receive Date: 20150226
  Receipt Date: 20150227
  Transmission Date: 20150721
  Serious: Yes (Hospitalization)
  Sender: FDA-Public Use
  Company Number: GR-009507513-1502GRC008902

PATIENT
  Age: 58 Year
  Sex: Male

DRUGS (4)
  1. FENTANYL. [Suspect]
     Active Substance: FENTANYL
     Indication: RADICULITIS LUMBOSACRAL
     Dosage: 20 G, ONCE
     Route: 008
  2. ROPIVACAINE [Suspect]
     Active Substance: ROPIVACAINE
     Indication: RADICULITIS LUMBOSACRAL
     Dosage: 6 ML, ONCE
     Route: 008
  3. CLONIDINE. [Suspect]
     Active Substance: CLONIDINE
     Indication: RADICULITIS LUMBOSACRAL
     Dosage: 50 G, ONCE
     Route: 008
  4. BETAMETHASONE ACETATE (+) BETAMETHASONE SODIUM PHOSPHATE [Suspect]
     Active Substance: BETAMETHASONE ACETATE\BETAMETHASONE SODIUM PHOSPHATE
     Indication: RADICULITIS LUMBOSACRAL
     Dosage: 3+3 MG, ONCE
     Route: 008

REACTIONS (7)
  - Back pain [Recovered/Resolved]
  - Myoclonic epilepsy [Recovered/Resolved]
  - Memory impairment [Recovered/Resolved]
  - Sensory loss [Recovered/Resolved]
  - Urinary incontinence [Recovered/Resolved]
  - Loss of consciousness [Recovered/Resolved]
  - Muscular weakness [Recovered/Resolved]
